FAERS Safety Report 18837214 (Version 1)
Quarter: 2021Q1

REPORT INFORMATION
  Report Type: Spontaneous
  Country: FR (occurrence: FR)
  Receive Date: 20210203
  Receipt Date: 20210203
  Transmission Date: 20210419
  Serious: Yes (Hospitalization)
  Sender: FDA-Public Use
  Company Number: NVSC2021FR019704

PATIENT
  Age: 73 Year
  Sex: Female
  Weight: 56 kg

DRUGS (8)
  1. ATEZOLIZUMAB. [Suspect]
     Active Substance: ATEZOLIZUMAB
     Indication: OVARIAN CANCER
     Dosage: 500 MG, (LAST DOSE RECEIVED ON 14 DEC 2020)
     Route: 042
     Dates: start: 20201214
  2. ZOPHREN [Suspect]
     Active Substance: ONDANSETRON
     Indication: CHEMOTHERAPY SIDE EFFECT PROPHYLAXIS
     Dosage: 8 MG, (LAST DOSE RECEIVED ON 14 DEC 2020)
     Route: 048
     Dates: start: 20201214
  3. PACLITAXEL. [Suspect]
     Active Substance: PACLITAXEL
     Indication: OVARIAN CANCER
     Dosage: 276 MG, (LAST DOSE RECEIVED ON 14 DEC 2020)
     Route: 042
     Dates: start: 20201214
  4. EMEND [Suspect]
     Active Substance: APREPITANT
     Indication: CHEMOTHERAPY SIDE EFFECT PROPHYLAXIS
     Dosage: 125 MG, (LAST DOSE RECEIVED ON 14 DEC 2020)
     Route: 048
     Dates: start: 20201214
  5. AVASTIN [Suspect]
     Active Substance: BEVACIZUMAB
     Indication: OVARIAN CANCER
     Dosage: 837 MG, (LAST DOSE RECEIVED ON 14 DEC 2020)
     Route: 042
     Dates: start: 20201214
  6. PREDNISOLONE. [Suspect]
     Active Substance: PREDNISOLONE
     Indication: CHEMOTHERAPY SIDE EFFECT PROPHYLAXIS
     Dosage: 20 MG, (LAST DOSE RECEIVED ON 14 DEC 2020)
     Route: 048
     Dates: start: 20201214
  7. CARBOPLATINE [Suspect]
     Active Substance: CARBOPLATIN
     Indication: OVARIAN CANCER
     Dosage: 60 MG, (LAST DOSE RECEIVED ON 14 DEC 2020)
     Route: 042
     Dates: start: 20201214
  8. EMLA [Suspect]
     Active Substance: LIDOCAINE\PRILOCAINE
     Indication: CHEMOTHERAPY SIDE EFFECT PROPHYLAXIS
     Dosage: 1 DF, (LAST DOSE RECEIVED ON 14 DEC 2020)
     Route: 003
     Dates: start: 20201214

REACTIONS (3)
  - Pruritus [Recovering/Resolving]
  - Rash maculo-papular [Recovering/Resolving]
  - Erythema [Recovering/Resolving]

NARRATIVE: CASE EVENT DATE: 20201215
